FAERS Safety Report 9047283 (Version 1)
Quarter: 2013Q1

REPORT INFORMATION
  Report Type: Report from Study
  Country: US (occurrence: US)
  Receive Date: 20130131
  Receipt Date: 20130131
  Transmission Date: 20140127
  Serious: No
  Sender: FDA-Public Use
  Company Number: US-ABBOTT-12P-163-0977916-00

PATIENT
  Age: 53 None
  Sex: Male
  Weight: 88.53 kg

DRUGS (9)
  1. HUMIRA [Suspect]
     Indication: RHEUMATOID ARTHRITIS
     Route: 058
     Dates: start: 20120830
  2. UNKNOWN MEDICATION [Concomitant]
     Indication: BLOOD CHOLESTEROL INCREASED
  3. ADVAIR [Concomitant]
     Indication: PULMONARY FIBROSIS
  4. ALBUTEROL INHALERS [Concomitant]
     Indication: PULMONARY FIBROSIS
  5. UNKNOWN MEDICATION IN NEBULIZER [Concomitant]
     Indication: PULMONARY FIBROSIS
  6. OXYGEN [Concomitant]
     Indication: PULMONARY FIBROSIS
     Dosage: 2.5 L PER NASAL CANNULA AT NIGHT
  7. OXYGEN [Concomitant]
     Indication: SLEEP APNOEA SYNDROME
  8. UNKNOWN ANTI INFLAMMATORY [Concomitant]
     Indication: RHEUMATOID ARTHRITIS
     Route: 048
     Dates: start: 201206
  9. UNKNOWN BLOOD THINNER [Concomitant]
     Indication: MYOCARDIAL INFARCTION
     Dates: start: 2011

REACTIONS (3)
  - Fatigue [Recovered/Resolved]
  - Injection site pain [Recovered/Resolved]
  - Myalgia [Recovered/Resolved]
